FAERS Safety Report 19245002 (Version 1)
Quarter: 2021Q2

REPORT INFORMATION
  Report Type: Other
  Country: IN (occurrence: IN)
  Receive Date: 20210511
  Receipt Date: 20210511
  Transmission Date: 20210717
  Serious: Yes (Life-Threatening, Other)
  Sender: FDA-Public Use
  Company Number: IN-INVATECH-000060

PATIENT
  Age: 61 Year
  Sex: Male

DRUGS (2)
  1. KAYEXALATE [Suspect]
     Active Substance: SODIUM POLYSTYRENE SULFONATE
     Indication: HYPERKALAEMIA
     Route: 048
  2. K BIND [Suspect]
     Active Substance: CALCIUM POLYSTYRENE SULFONATE
     Indication: HYPERKALAEMIA
     Route: 048

REACTIONS (3)
  - Crystal deposit intestine [Unknown]
  - Rectal haemorrhage [Recovered/Resolved]
  - Large intestinal ulcer [Recovered/Resolved]
